FAERS Safety Report 6750625-3 (Version None)
Quarter: 2010Q2

REPORT INFORMATION
  Report Type: 
  Country: None (occurrence: None)
  Receive Date: 20100527
  Receipt Date: 20100513
  Transmission Date: 20101027
  Serious: Yes (Death, Hospitalization)
  Sender: FDA-Public Use
  Company Number: 2009BI021829

PATIENT
  Age: 64 Year
  Sex: Male

DRUGS (21)
  1. ZEVALIN [Suspect]
     Indication: B-CELL LYMPHOMA
     Dosage: 32 MCI; 1X; IV
     Route: 042
     Dates: start: 20090304, end: 20090304
  2. ZEVALIN [Suspect]
     Indication: STEM CELL TRANSPLANT
     Dosage: 32 MCI; 1X; IV
     Route: 042
     Dates: start: 20090304, end: 20090304
  3. RITUXIMAB [Concomitant]
  4. FLUDARABINE [Concomitant]
  5. CYCLOPHOSPHAMIDE [Concomitant]
  6. TACROLIMUS [Concomitant]
  7. SEPTRA DS [Concomitant]
  8. ADALAT CC [Concomitant]
  9. ZANTAC [Concomitant]
  10. AVODART [Concomitant]
  11. SYNTHROID [Concomitant]
  12. CELEXA [Concomitant]
  13. METFORMIN [Concomitant]
  14. FOLIC ACID [Concomitant]
  15. ENTOCORT EC [Concomitant]
  16. MAGNESIUM [Concomitant]
  17. PREDNISONE [Concomitant]
  18. CELESTODERM [Concomitant]
  19. ACTONEL [Concomitant]
  20. CALCIUM CARBONATE [Concomitant]
  21. VITAMIN D [Concomitant]

REACTIONS (5)
  - ACUTE GRAFT VERSUS HOST DISEASE IN INTESTINE [None]
  - GASTROENTERITIS NOROVIRUS [None]
  - PNEUMONIA [None]
  - SEPTIC SHOCK [None]
  - STEM CELL TRANSPLANT [None]
